FAERS Safety Report 4650118-3 (Version None)
Quarter: 2005Q2

REPORT INFORMATION
  Report Type: 
  Country: None (occurrence: None)
  Receive Date: 20050502
  Receipt Date: 20040405
  Transmission Date: 20051028
  Serious: Yes (Hospitalization, Disabling, Other)
  Sender: FDA-Public Use
  Company Number: US-BRISTOL-MYERS SQUIBB COMPANY-12557617

PATIENT
  Age: 63 Year
  Sex: Male

DRUGS (16)
  1. PRAVACHOL [Suspect]
     Indication: HYPERLIPIDAEMIA
     Dosage: 13-SEP-2000: 10MG/D; 13-OCT-2000: 20MG/D; 16-FEB-2001: 30MG/D; 17-AUG-2001: 40MG/D
  2. NEORAL [Concomitant]
  3. CELLCEPT [Concomitant]
  4. RANITIDINE [Concomitant]
  5. MULTI-VITAMIN [Concomitant]
  6. CALCIUM + VITAMIN D [Concomitant]
  7. VITAMIN B COMPLEX CAP [Concomitant]
  8. MAGNESIUM OXIDE [Concomitant]
  9. CARTIA XT [Concomitant]
     Indication: BLOOD PRESSURE
  10. VASOTEC [Concomitant]
     Indication: BLOOD PRESSURE
  11. METFORMIN HCL [Concomitant]
     Indication: DIABETES MELLITUS
     Dates: start: 20020614
  12. WELCHOL [Concomitant]
     Indication: HYPERLIPIDAEMIA
     Dosage: DOSAGE FORM = TABLETS
     Dates: start: 20020614
  13. PREVACID [Concomitant]
  14. GLUCOTROL XL [Concomitant]
  15. LENTE INSULIN [Concomitant]
  16. NIASPAN [Concomitant]

REACTIONS (3)
  - CEREBROVASCULAR ACCIDENT [None]
  - CHOLELITHIASIS [None]
  - POLYP [None]
